FAERS Safety Report 4874826-4 (Version None)
Quarter: 2006Q1

REPORT INFORMATION
  Report Type: 
  Country: None (occurrence: None)
  Receive Date: 20060103
  Receipt Date: 20060103
  Transmission Date: 20060701
  Serious: Yes (Hospitalization, Other)
  Sender: FDA-Public Use
  Company Number: None

PATIENT
  Sex: Female
  Weight: 19 kg

DRUGS (8)
  1. CYCLOPHOSPHAMIDE [Suspect]
     Indication: B PRECURSOR TYPE ACUTE LEUKAEMIA
     Dosage: SEE IMAGE
     Dates: start: 20051206, end: 20051216
  2. CYCLOPHOSPHAMIDE [Suspect]
     Indication: B PRECURSOR TYPE ACUTE LEUKAEMIA
     Dosage: SEE IMAGE
     Dates: start: 20051101
  3. CYTARABINE [Suspect]
     Dosage: SEE IMAGE
  4. DEXAMETHASONE TAB [Suspect]
     Dosage: SEE IMAGE
     Route: 048
     Dates: start: 20051101, end: 20051121
  5. DOXORUBICIN HCL [Suspect]
     Dosage: SEE IMAGE
     Route: 042
     Dates: start: 20051101, end: 20051115
  6. METHOTREXATE [Suspect]
     Dosage: SEE IMAGE
     Route: 037
     Dates: start: 20051101, end: 20051213
  7. ONCASPAR [Suspect]
     Dosage: SEE IMAGE
     Dates: start: 20051104, end: 20051220
  8. THIOGUANINE [Suspect]
     Dosage: SEE IMAGE
     Dates: start: 20051206, end: 20051219

REACTIONS (6)
  - ALANINE AMINOTRANSFERASE INCREASED [None]
  - ASCITES [None]
  - ASPARTATE AMINOTRANSFERASE INCREASED [None]
  - BLOOD BILIRUBIN INCREASED [None]
  - BLOOD LACTATE DEHYDROGENASE INCREASED [None]
  - DISSEMINATED INTRAVASCULAR COAGULATION [None]
